FAERS Safety Report 24083438 (Version 2)
Quarter: 2024Q3

REPORT INFORMATION
  Report Type: Spontaneous
  Country: US (occurrence: US)
  Receive Date: 20240712
  Receipt Date: 20240808
  Transmission Date: 20241016
  Serious: Yes (Life-Threatening, Hospitalization, Other)
  Sender: HIKMA
  Company Number: HIKM2405388

PATIENT
  Age: 35 Year
  Sex: Female
  Weight: 126.53 kg

DRUGS (6)
  1. ATIVAN [Suspect]
     Active Substance: LORAZEPAM
     Indication: Sedative therapy
     Dosage: 1 MILLIGRAM, BID, ^HIGH DOSES^
     Route: 065
  2. LITHIUM [Suspect]
     Active Substance: LITHIUM
     Indication: Mania
     Dosage: UNKNOWN
     Route: 065
     Dates: end: 202311
  3. CAPLYTA [Concomitant]
     Active Substance: LUMATEPERONE
     Indication: Bipolar disorder
     Dosage: 42 MILLIGRAM, QD
     Route: 048
     Dates: start: 202305, end: 202312
  4. GABAPENTIN [Concomitant]
     Active Substance: GABAPENTIN
     Indication: Sedative therapy
     Dosage: ^HIGH DOSES^
     Route: 065
  5. LATUDA [Concomitant]
     Active Substance: LURASIDONE HYDROCHLORIDE
     Indication: Mania
     Dosage: 120 MILLIGRAM
     Route: 065
     Dates: end: 2023
  6. XANAX [Concomitant]
     Active Substance: ALPRAZOLAM
     Indication: Sedative therapy
     Dosage: ^HIGH DOSES^
     Route: 065

REACTIONS (12)
  - Near death experience [Unknown]
  - Nervous system disorder [Recovered/Resolved]
  - Atelectasis [Recovered/Resolved]
  - Pleural effusion [Recovered/Resolved]
  - Toxicity to various agents [Recovered/Resolved]
  - Cardiac disorder [Recovered/Resolved]
  - Cardiac failure [Unknown]
  - Mania [Recovered/Resolved]
  - Sedation [Recovered/Resolved]
  - Weight decreased [Not Recovered/Not Resolved]
  - Amnesia [Not Recovered/Not Resolved]
  - Dehydration [Unknown]

NARRATIVE: CASE EVENT DATE: 20231001
